FAERS Safety Report 8279253-8 (Version None)
Quarter: 2012Q2

REPORT INFORMATION
  Report Type: 
  Country: None (occurrence: None)
  Receive Date: 20120412
  Receipt Date: 20110929
  Transmission Date: 20120825
  Serious: No
  Sender: FDA-Public Use
  Company Number: US-ASTRAZENECA-2011SE58827

PATIENT
  Age: 64 Year
  Sex: Male

DRUGS (5)
  1. AZOR [Concomitant]
  2. PLAVIX [Suspect]
     Route: 048
     Dates: start: 20110901
  3. NEXIUM [Suspect]
     Route: 048
  4. ROSUVASTATIN [Concomitant]
  5. LANTUS [Concomitant]

REACTIONS (2)
  - VEIN PAIN [None]
  - DIZZINESS [None]
